FAERS Safety Report 13613256 (Version 1)
Quarter: 2017Q2

REPORT INFORMATION
  Report Type: Other
  Country: FR (occurrence: FR)
  Receive Date: 20170605
  Receipt Date: 20170605
  Transmission Date: 20170830
  Serious: Yes (Other)
  Sender: FDA-Public Use
  Company Number: FR-TAKEDA-2017TUS012244

PATIENT
  Age: 61 Year
  Sex: Female

DRUGS (6)
  1. IMETH [Concomitant]
     Active Substance: METHOTREXATE SODIUM
     Dosage: UNK UNK, QD
     Route: 048
     Dates: start: 20170502
  2. TRAMADOL HYDROCHLORIDE. [Concomitant]
     Active Substance: TRAMADOL HYDROCHLORIDE
     Dosage: 150 MG, QD
     Route: 048
  3. SPECIAFOLDINE [Concomitant]
     Active Substance: FOLIC ACID
     Dosage: 5 MG, UNK
     Route: 048
     Dates: start: 20170502
  4. PARACETAMOL [Concomitant]
     Active Substance: ACETAMINOPHEN
     Dosage: UNK, QID
     Route: 048
  5. ESOMEPRAZOLE [Concomitant]
     Active Substance: ESOMEPRAZOLE
     Dosage: 20 MG, QD
     Route: 048
  6. ENTYVIO [Suspect]
     Active Substance: VEDOLIZUMAB
     Indication: COLITIS
     Dosage: 300 MG, Q8WEEKS
     Route: 042
     Dates: start: 20151009

REACTIONS (2)
  - Bronchitis chronic [Not Recovered/Not Resolved]
  - Sinusitis [Not Recovered/Not Resolved]

NARRATIVE: CASE EVENT DATE: 20151010
